FAERS Safety Report 19728890 (Version 1)
Quarter: 2021Q3

REPORT INFORMATION
  Report Type: Spontaneous
  Country: PT (occurrence: PT)
  Receive Date: 20210820
  Receipt Date: 20210820
  Transmission Date: 20211014
  Serious: No
  Sender: FDA-Public Use
  Company Number: PT-LUPIN PHARMACEUTICALS INC.-2021-15054

PATIENT
  Age: 5 Year
  Sex: Male
  Weight: 165 kg

DRUGS (2)
  1. METHYLPHENIDATE. [Suspect]
     Active Substance: METHYLPHENIDATE
     Dosage: 10 MILLIGRAM (RE?INITIATED AT LOW DOSE; SHORT?ACTING)
     Route: 065
  2. METHYLPHENIDATE. [Suspect]
     Active Substance: METHYLPHENIDATE
     Indication: ATTENTION DEFICIT HYPERACTIVITY DISORDER
     Dosage: UNK (INITIAL DOSE UNKNOWN; SHORT?ACTING)
     Route: 065

REACTIONS (1)
  - Decreased appetite [Unknown]
